FAERS Safety Report 6347912-X (Version None)
Quarter: 2009Q3

REPORT INFORMATION
  Report Type: 
  Country: None (occurrence: None)
  Receive Date: 20090910
  Receipt Date: 20090908
  Transmission Date: 20100115
  Serious: Yes (Hospitalization)
  Sender: FDA-Public Use
  Company Number: US-KINGPHARMUSA00001-K200901095

PATIENT
  Age: 78 Year
  Sex: Female

DRUGS (10)
  1. ALTACE [Suspect]
     Indication: HYPERTENSION
     Dosage: 10 MG, QD
     Route: 048
     Dates: end: 20090805
  2. RASILEZ [Suspect]
     Indication: HYPERTENSION
     Dosage: 150 MG, QD
     Route: 048
     Dates: start: 20080601, end: 20090805
  3. RASILEZ [Suspect]
     Dosage: 300 MG, QD
     Route: 048
     Dates: start: 20090806
  4. DOXACOR [Concomitant]
     Indication: HYPERTENSION
     Dosage: UNK
     Route: 048
     Dates: end: 20090805
  5. L-THYROX [Concomitant]
     Indication: AUTOIMMUNE THYROIDITIS
     Dosage: 100 U/G, UNK
  6. METOHEXAL [Concomitant]
     Indication: HYPERTENSION
     Dosage: 200 MG, UNK
     Route: 048
  7. MINIASAL [Concomitant]
     Indication: PROPHYLAXIS
     Dosage: 100 MG, UNK
     Route: 048
  8. MOXONIDINE PCH [Concomitant]
     Indication: HYPERTENSION
     Dosage: 0.6 MG, UNK
     Route: 048
  9. PROVAS [Concomitant]
     Indication: HYPERTENSION
     Dosage: 160 MG, UNK
     Route: 048
     Dates: end: 20090805
  10. SULPIRIDE [Concomitant]
     Indication: DEPRESSION
     Dosage: 50 MG, UNK
     Route: 048

REACTIONS (7)
  - DIZZINESS [None]
  - DRUG INEFFECTIVE [None]
  - DRUG INTERACTION [None]
  - HEADACHE [None]
  - HYPERTENSIVE CRISIS [None]
  - HYPONATRAEMIA [None]
  - MALAISE [None]
